FAERS Safety Report 24567025 (Version 1)
Quarter: 2024Q4

REPORT INFORMATION
  Report Type: Spontaneous
  Country: US (occurrence: US)
  Receive Date: 20241030
  Receipt Date: 20241030
  Transmission Date: 20250115
  Serious: No
  Sender: TEVA
  Company Number: US-TEVA-VS-3254246

PATIENT
  Sex: Male

DRUGS (1)
  1. QVAR REDIHALER [Suspect]
     Active Substance: BECLOMETHASONE DIPROPIONATE
     Indication: Product used for unknown indication
     Route: 055

REACTIONS (7)
  - Asthma [Not Recovered/Not Resolved]
  - Product delivery mechanism issue [Unknown]
  - Device defective [Unknown]
  - Device malfunction [Unknown]
  - Wheezing [Unknown]
  - Cough [Unknown]
  - Exercise tolerance decreased [Unknown]
